FAERS Safety Report 5788147-9 (Version None)
Quarter: 2008Q2

REPORT INFORMATION
  Report Type: 
  Country: None (occurrence: None)
  Receive Date: 20080623
  Receipt Date: 20080612
  Transmission Date: 20081010
  Serious: Yes (Other)
  Sender: FDA-Public Use
  Company Number: 2007MP000539

PATIENT

DRUGS (3)
  1. GLIADEL [Suspect]
     Indication: MALIGNANT GLIOMA
     Dosage: X1;ICER
  2. O6-BENZYLGUANINE [Suspect]
     Indication: MALIGNANT GLIOMA
     Dosage: 120 MG/M**2;TIW;IV; 30 MG/M**2;QD;IV
     Route: 042
  3. O6-BENZYLGUANINE [Suspect]
     Indication: MALIGNANT GLIOMA
     Dosage: 120 MG/M**2;TIW;IV; 30 MG/M**2;QD;IV
     Route: 042

REACTIONS (10)
  - ARACHNOIDITIS [None]
  - CENTRAL NERVOUS SYSTEM INFECTION [None]
  - EXTRADURAL HAEMATOMA [None]
  - HYDROCEPHALUS [None]
  - HYPONATRAEMIA [None]
  - INTRACRANIAL HYPOTENSION [None]
  - MENINGITIS [None]
  - POSTOPERATIVE WOUND INFECTION [None]
  - PYREXIA [None]
  - SUBDURAL HYGROMA [None]
